FAERS Safety Report 8371888-7 (Version None)
Quarter: 2012Q2

REPORT INFORMATION
  Report Type: 
  Country: None (occurrence: None)
  Receive Date: 20120518
  Receipt Date: 20120510
  Transmission Date: 20120825
  Serious: Yes (Hospitalization)
  Sender: FDA-Public Use
  Company Number: JP-ROCHE-1055924

PATIENT
  Sex: Male
  Weight: 63 kg

DRUGS (9)
  1. FAMOTIDINE [Concomitant]
     Indication: GASTRITIS
     Route: 048
     Dates: start: 20120312
  2. AVASTIN [Suspect]
     Indication: COLON CANCER METASTATIC
     Route: 041
     Dates: start: 20120326, end: 20120326
  3. ISOVORIN [Concomitant]
     Indication: COLON CANCER METASTATIC
     Route: 041
     Dates: start: 20120221
  4. OXALIPLATIN [Concomitant]
     Indication: COLON CANCER METASTATIC
     Route: 041
     Dates: start: 20120221
  5. VOLTAREN [Concomitant]
     Indication: PYREXIA
     Dosage: TAKEN AS NEEDED.
     Route: 054
     Dates: start: 20120221
  6. ZOLPIDEM [Concomitant]
     Indication: INSOMNIA
     Route: 048
     Dates: start: 20120223
  7. FLUOROURACIL [Concomitant]
     Indication: COLON CANCER METASTATIC
     Route: 040
     Dates: start: 20120221
  8. FLUOROURACIL [Concomitant]
     Route: 041
     Dates: start: 20120221
  9. GLYCYRON [Concomitant]
     Indication: LIVER DISORDER
     Route: 048
     Dates: start: 20120316, end: 20120330

REACTIONS (1)
  - CONVULSION [None]
